FAERS Safety Report 9373113 (Version 1)
Quarter: 2013Q2

REPORT INFORMATION
  Report Type: Spontaneous
  Country: US (occurrence: US)
  Receive Date: 20130627
  Receipt Date: 20130627
  Transmission Date: 20140414
  Serious: No
  Sender: FDA-Public Use
  Company Number: US-009507513-1306USA012843

PATIENT
  Age: 40 Year
  Sex: Female

DRUGS (1)
  1. SAPHRIS [Suspect]
     Indication: ANXIETY
     Dosage: 5 MG, UNK
     Route: 060
     Dates: end: 2013

REACTIONS (1)
  - Glossodynia [Recovered/Resolved]
